FAERS Safety Report 10069407 (Version 1)
Quarter: 2014Q2

REPORT INFORMATION
  Report Type: Spontaneous
  Country: US (occurrence: US)
  Receive Date: 20140410
  Receipt Date: 20140410
  Transmission Date: 20141212
  Serious: Yes (Other)
  Sender: FDA-Public Use
  Company Number: US-PFIZER INC-2014095463

PATIENT
  Sex: Male

DRUGS (3)
  1. NEURONTIN [Suspect]
     Dosage: UNK
  2. LIPITOR [Suspect]
     Dosage: UNK
  3. RAPAMUNE [Suspect]
     Dosage: UNK

REACTIONS (6)
  - Diabetes mellitus [Unknown]
  - Blood cholesterol increased [Unknown]
  - Hypertension [Unknown]
  - Memory impairment [Unknown]
  - Nerve injury [Unknown]
  - Testicular disorder [Unknown]
